FAERS Safety Report 6519976-1 (Version None)
Quarter: 2009Q4

REPORT INFORMATION
  Report Type: 
  Country: None (occurrence: None)
  Receive Date: 20091229
  Receipt Date: 20091221
  Transmission Date: 20100525
  Serious: Yes (Life-Threatening, Other)
  Sender: FDA-Public Use
  Company Number: US-NAPPMUNDI-USA-2009-0041554

PATIENT
  Age: 32 Year
  Sex: Female
  Weight: 122.45 kg

DRUGS (1)
  1. DILAUDID [Suspect]
     Indication: DRUG USE FOR UNKNOWN INDICATION

REACTIONS (2)
  - PNEUMONIA [None]
  - RESPIRATORY ARREST [None]
